FAERS Safety Report 6173556-9 (Version None)
Quarter: 2009Q2

REPORT INFORMATION
  Report Type: 
  Country: None (occurrence: None)
  Receive Date: 20090430
  Receipt Date: 20090428
  Transmission Date: 20091009
  Serious: Yes (Hospitalization)
  Sender: FDA-Public Use
  Company Number: B0571802A

PATIENT
  Sex: Female

DRUGS (7)
  1. VENTOLIN [Suspect]
     Indication: ASTHMA
     Dosage: 8PUFF PER DAY
     Route: 055
  2. PULMICORT-100 [Concomitant]
     Indication: ASTHMA
     Dosage: 1PUFF THREE TIMES PER DAY
     Route: 055
  3. CELEBREX [Concomitant]
     Indication: DRUG USE FOR UNKNOWN INDICATION
     Route: 065
  4. MEDROL [Concomitant]
     Indication: ASTHMA
     Route: 065
  5. SERETIDE DISKUS [Concomitant]
     Indication: ASTHMA
     Dosage: 2PUFF THREE TIMES PER DAY
     Route: 065
  6. OXYGEN [Concomitant]
     Indication: ASTHMA
     Route: 065
  7. VENTOLIN [Concomitant]
     Route: 055

REACTIONS (3)
  - ASTHMATIC CRISIS [None]
  - DRUG INEFFECTIVE [None]
  - PRODUCT QUALITY ISSUE [None]
